FAERS Safety Report 5168266-0 (Version None)
Quarter: 2006Q4

REPORT INFORMATION
  Report Type: 
  Country: None (occurrence: None)
  Receive Date: 20061201
  Receipt Date: 20061121
  Transmission Date: 20070319
  Serious: Yes (Death, Hospitalization, Other)
  Sender: FDA-Public Use
  Company Number: 009-20785-06111224

PATIENT
  Age: 53 Year
  Sex: Male

DRUGS (2)
  1. THALIDOMIDE [Suspect]
     Indication: LYMPHOMA
     Dosage: 200 MG, 4 IN 1 D, ORAL
     Route: 048
     Dates: start: 20060619
  2. PANTOPRAZOLE SODIUM [Concomitant]

REACTIONS (4)
  - ABDOMINAL PAIN UPPER [None]
  - CIRCULATORY COLLAPSE [None]
  - FALL [None]
  - NAUSEA [None]
